FAERS Safety Report 9213565 (Version 1)
Quarter: 2013Q2

REPORT INFORMATION
  Report Type: Spontaneous
  Country: US (occurrence: US)
  Receive Date: 20130405
  Receipt Date: 20130405
  Transmission Date: 20140414
  Serious: Yes (Other)
  Sender: FDA-Public Use
  Company Number: US-PURDUE-USA-2013-0100498

PATIENT
  Age: 59 Year
  Sex: Female

DRUGS (1)
  1. OXYCODONE HYDROCHLORIDE (SIMILAR TO NDA 22-272) [Suspect]
     Indication: PAIN

REACTIONS (12)
  - Suicidal ideation [Unknown]
  - Drug dependence [Unknown]
  - Drug withdrawal syndrome [Unknown]
  - Burning sensation [Unknown]
  - Piloerection [Unknown]
  - Bone pain [Unknown]
  - Feeling cold [Unknown]
  - Malaise [Unknown]
  - Hyperhidrosis [Unknown]
  - Diarrhoea [Unknown]
  - Crying [Unknown]
  - Tremor [Unknown]
